FAERS Safety Report 11111885 (Version 1)
Quarter: 2015Q2

REPORT INFORMATION
  Report Type: Spontaneous
  Country: US (occurrence: None)
  Receive Date: 20150512
  Receipt Date: 20150512
  Transmission Date: 20150821
  Serious: No
  Sender: FDA-Public Use
  Company Number: None

PATIENT
  Age: 40 Year
  Sex: Female
  Weight: 54.43 kg

DRUGS (4)
  1. LEVSIN [Concomitant]
     Active Substance: HYOSCYAMINE SULFATE
  2. DULOXETINE [Suspect]
     Active Substance: DULOXETINE
     Indication: DEPRESSION
     Dates: start: 20131230, end: 20140127
  3. DOVONEX [Concomitant]
     Active Substance: CALCIPOTRIENE
  4. DULOXETINE [Suspect]
     Active Substance: DULOXETINE
     Indication: PREMENSTRUAL DYSPHORIC DISORDER
     Dates: start: 20131230, end: 20140127

REACTIONS (2)
  - Depression [None]
  - Product substitution issue [None]

NARRATIVE: CASE EVENT DATE: 20140127
